FAERS Safety Report 4617124-6 (Version None)
Quarter: 2005Q1

REPORT INFORMATION
  Report Type: 
  Country: None (occurrence: None)
  Receive Date: 20050323
  Receipt Date: 20050316
  Transmission Date: 20050727
  Serious: Yes (Life-Threatening)
  Sender: FDA-Public Use
  Company Number: JP-ROCHE-399197

PATIENT
  Age: 61 Year
  Sex: Male

DRUGS (3)
  1. TAMIFLU [Suspect]
     Indication: INFLUENZA
     Route: 048
     Dates: start: 20050222, end: 20050222
  2. ERYTHROCIN STEARATE [Concomitant]
     Route: 048
  3. MUCODYNE [Concomitant]
     Route: 048

REACTIONS (3)
  - LOSS OF CONSCIOUSNESS [None]
  - LYMPHOCYTE STIMULATION TEST POSITIVE [None]
  - TYPE IV HYPERSENSITIVITY REACTION [None]
